FAERS Safety Report 8491909-0 (Version None)
Quarter: 2012Q3

REPORT INFORMATION
  Report Type: 
  Country: None (occurrence: None)
  Receive Date: 20120706
  Receipt Date: 20111219
  Transmission Date: 20120928
  Serious: No
  Sender: FDA-Public Use
  Company Number: US-GLAXOSMITHKLINE-A0958652A

PATIENT
  Sex: Female

DRUGS (7)
  1. SPIRIVA [Concomitant]
  2. GLIPIZIDE [Concomitant]
  3. DIAVAN [Concomitant]
  4. FORADIL [Concomitant]
  5. PROVENTIL [Concomitant]
  6. FLOVENT [Suspect]
     Indication: ASTHMA
     Dosage: 2PUFF TWICE PER DAY
     Route: 055
     Dates: start: 20110101
  7. FELODIPINE [Concomitant]

REACTIONS (3)
  - APHONIA [None]
  - DYSPNOEA [None]
  - GAIT DISTURBANCE [None]
